FAERS Safety Report 7212188-8 (Version None)
Quarter: 2011Q1

REPORT INFORMATION
  Report Type: 
  Country: None (occurrence: None)
  Receive Date: 20110106
  Receipt Date: 20101231
  Transmission Date: 20110831
  Serious: Yes (Other)
  Sender: FDA-Public Use
  Company Number: US-BAYER-201040187NA

PATIENT
  Sex: Female
  Weight: 85.261 kg

DRUGS (1)
  1. MIRENA [Suspect]
     Indication: PRODUCT USED FOR UNKNOWN INDICATION
     Dosage: 20 A?G, CONT
     Route: 015
     Dates: end: 20101109

REACTIONS (1)
  - DEVICE DISLOCATION [None]
